FAERS Safety Report 5694940-3 (Version None)
Quarter: 2008Q2

REPORT INFORMATION
  Report Type: 
  Country: None (occurrence: None)
  Receive Date: 20080404
  Receipt Date: 20080326
  Transmission Date: 20081010
  Serious: Yes (Death, Life-Threatening, Hospitalization, Disabling)
  Sender: FDA-Public Use
  Company Number: AU-SANOFI-SYNTHELABO-D01200302050

PATIENT
  Sex: Female
  Weight: 60 kg

DRUGS (5)
  1. IRBESARTAN [Suspect]
     Indication: ATRIAL FIBRILLATION
     Dosage: 150 MG/DAY FOR 2 WEEKS FOLLOWING BY 300 MG/DAY
     Route: 048
     Dates: start: 20030917
  2. CLOPIDOGREL [Suspect]
     Indication: ATRIAL FIBRILLATION
     Route: 048
     Dates: start: 20030919, end: 20031225
  3. ASPIRIN [Concomitant]
     Dosage: 100 MG
     Route: 048
     Dates: start: 20030919, end: 20031225
  4. PRAVACHOL [Concomitant]
  5. ATENOLOL [Concomitant]

REACTIONS (1)
  - HAEMORRHAGIC STROKE [None]
